FAERS Safety Report 21298748 (Version 2)
Quarter: 2023Q4

REPORT INFORMATION
  Report Type: Spontaneous
  Country: US (occurrence: US)
  Receive Date: 20220906
  Receipt Date: 20231106
  Transmission Date: 20240109
  Serious: Yes (Hospitalization)
  Sender: FDA-Public Use
  Company Number: US-AMNEAL PHARMACEUTICALS-2022-AMRX-02401

PATIENT
  Age: 46 Year
  Sex: Female
  Weight: 109.75 kg

DRUGS (14)
  1. ACTIVELLA [Suspect]
     Active Substance: ESTRADIOL\NORETHINDRONE ACETATE
     Indication: Uterine leiomyoma
     Dosage: 1 IN 1 D
     Route: 048
     Dates: start: 20200815, end: 20220815
  2. ELAGOLIX [Suspect]
     Active Substance: ELAGOLIX
     Indication: Uterine leiomyoma
     Dosage: 300 MG, 1 IN 1 D
     Route: 048
     Dates: start: 20200815, end: 20220815
  3. ELAGOLIX [Suspect]
     Active Substance: ELAGOLIX
     Indication: Rash
  4. ELAGOLIX [Suspect]
     Active Substance: ELAGOLIX
     Indication: Urticaria
  5. ZYRTEC [Concomitant]
     Active Substance: CETIRIZINE HYDROCHLORIDE
     Indication: Rash
     Dosage: 20 MG, 2/DAY
     Route: 048
     Dates: start: 20210126
  6. ZYRTEC [Concomitant]
     Active Substance: CETIRIZINE HYDROCHLORIDE
     Indication: Urticaria
  7. TRIAMCINOLONE ACETONIDE [Concomitant]
     Active Substance: TRIAMCINOLONE ACETONIDE
     Indication: Rash
     Dosage: 0.1 %,1 IN 1 D)
     Route: 061
     Dates: start: 20210515
  8. TRIAMCINOLONE ACETONIDE [Concomitant]
     Active Substance: TRIAMCINOLONE ACETONIDE
     Indication: Urticaria
  9. NIACIN [Concomitant]
     Active Substance: NIACIN
     Indication: Urticaria
     Dosage: 1000 MG,1 IN 1 D
     Route: 048
     Dates: start: 20210522
  10. HYDROCHLOROTHIAZIDE [Concomitant]
     Active Substance: HYDROCHLOROTHIAZIDE
     Indication: Hypertension
     Dosage: 25 MG,1 IN 1 D
     Route: 048
     Dates: start: 20220725
  11. BIOTIN [Concomitant]
     Active Substance: BIOTIN
     Indication: Nutritional supplementation
     Dosage: 4 CAPSULE,1 IN 1 D)
     Route: 048
     Dates: start: 20220725
  12. ELIQUIS [Concomitant]
     Active Substance: APIXABAN
     Indication: Anticoagulant therapy
     Dosage: 5 MG, 1 IN 1 D
     Route: 048
     Dates: start: 20220813, end: 20220817
  13. TRAMADOL [Concomitant]
     Active Substance: TRAMADOL\TRAMADOL HYDROCHLORIDE
     Indication: Pain
     Dosage: 50 MG, 1 AS REQUIRED
     Route: 048
     Dates: start: 20220812, end: 20220814
  14. MULTIVITAMIN [ASCORBIC ACID;COLECALCIFEROL;NICOTINAMIDE;PYRIDOXINE HYD [Concomitant]
     Indication: Nutritional supplementation
     Dosage: 1 DOSE EVERY 1 DAY
     Route: 065
     Dates: start: 20220725

REACTIONS (1)
  - Splenic thrombosis [Recovered/Resolved]

NARRATIVE: CASE EVENT DATE: 20220817
